FAERS Safety Report 20252876 (Version 1)
Quarter: 2021Q4

REPORT INFORMATION
  Report Type: Spontaneous
  Country: US (occurrence: US)
  Receive Date: 20211229
  Receipt Date: 20211229
  Transmission Date: 20220303
  Serious: No
  Sender: FDA-Public Use
  Company Number: US-PURDUE-USA-2020-0225411

PATIENT

DRUGS (1)
  1. OXYCONTIN [Suspect]
     Active Substance: OXYCODONE HYDROCHLORIDE
     Indication: Pain
     Dosage: 240 MG, DAILY
     Route: 048

REACTIONS (4)
  - Hypersomnia [Unknown]
  - Bedridden [Unknown]
  - Impaired work ability [Unknown]
  - Impaired driving ability [Unknown]
